FAERS Safety Report 19943906 (Version 6)
Quarter: 2021Q4

REPORT INFORMATION
  Report Type: Report from Study
  Country: CN (occurrence: CN)
  Receive Date: 20211012
  Receipt Date: 20211125
  Transmission Date: 20220304
  Serious: Yes (Hospitalization)
  Sender: FDA-Public Use
  Company Number: CN-HTU-2021CN023463

PATIENT
  Age: 47 Year
  Sex: Female
  Weight: 66 kg

DRUGS (10)
  1. DANG FEI LI GAN NING [Concomitant]
     Indication: Liver disorder
     Dosage: 2 TABLETS, TID
     Route: 048
     Dates: start: 202108, end: 20210918
  2. DANG FEI LI GAN NING [Concomitant]
     Indication: Alanine aminotransferase increased
     Dosage: 2 CAPSULES, TID
     Route: 048
     Dates: start: 20210903
  3. DANG FEI LI GAN NING [Concomitant]
     Dosage: 2 CAPSULES, TID
     Route: 048
     Dates: start: 202108, end: 20210827
  4. INOSINE [Concomitant]
     Active Substance: INOSINE
     Indication: Transaminases increased
     Dosage: UNK, INJECTION
     Route: 042
     Dates: start: 202109, end: 202109
  5. GLUTATHIONE [Concomitant]
     Active Substance: GLUTATHIONE
     Indication: Transaminases increased
     Dosage: UNK, INJECTION
     Route: 042
     Dates: start: 202109, end: 202109
  6. MONTMORILLONITE [Concomitant]
     Active Substance: MONTMORILLONITE
     Indication: Diarrhoea
     Dosage: 3 GRAM, QD
     Route: 048
     Dates: start: 20210907, end: 20210908
  7. OXYCODONE HYDROCHLORIDE LEHIGH VALLEY [Concomitant]
     Indication: Pain
     Dosage: 10 MILLIGRAM, PRN
     Route: 048
     Dates: start: 202107
  8. PHOSPHOLIPID [Concomitant]
     Active Substance: PHOSPHOLIPID
     Indication: Liver disorder
     Dosage: 228 MILLIGRAM, TID
     Route: 048
     Dates: start: 202108, end: 20210827
  9. INFIGRATINIB [Suspect]
     Active Substance: INFIGRATINIB
     Indication: Neoplasm malignant
     Dosage: 125 MILLIGRAM, QD
     Route: 048
     Dates: start: 20210827, end: 20210922
  10. INFIGRATINIB [Suspect]
     Active Substance: INFIGRATINIB
     Indication: Cholangiocarcinoma
     Dosage: 100 MILLIGRAM, QD
     Route: 048
     Dates: start: 20210930, end: 20211009

REACTIONS (1)
  - Aspartate aminotransferase increased [Not Recovered/Not Resolved]

NARRATIVE: CASE EVENT DATE: 20210916
